FAERS Safety Report 9302567 (Version 2)
Quarter: 2013Q2

REPORT INFORMATION
  Report Type: Spontaneous
  Country: US (occurrence: None)
  Receive Date: 20130516
  Receipt Date: 20130517
  Transmission Date: 20140414
  Serious: Yes (Disabling, Other)
  Sender: FDA-Public Use
  Company Number: ACO_36140_2013

PATIENT
  Sex: Female
  Weight: 70.3 kg

DRUGS (5)
  1. AMPYRA [Suspect]
     Indication: MULTIPLE SCLEROSIS
     Route: 048
     Dates: start: 201108
  2. AMPYRA [Suspect]
     Indication: GAIT DISTURBANCE
     Route: 048
     Dates: start: 201108
  3. METOPROLOL (METOPROLOL TARTRATE) [Concomitant]
  4. LISINOPRIL (LISINOPRIL) [Concomitant]
  5. OTHER DIURETICS [Concomitant]

REACTIONS (2)
  - Abasia [None]
  - Mobility decreased [None]
